FAERS Safety Report 20695379 (Version 1)
Quarter: 2022Q2

REPORT INFORMATION
  Report Type: Report from Study
  Country: FR (occurrence: FR)
  Receive Date: 20220411
  Receipt Date: 20220411
  Transmission Date: 20220720
  Serious: Yes (Other)
  Sender: FDA-Public Use
  Company Number: FR-UNICANCER-2021000687

PATIENT
  Age: 33 Year
  Sex: Female
  Weight: 76 kg

DRUGS (5)
  1. TRASTUZUMAB DERUXTECAN [Suspect]
     Active Substance: TRASTUZUMAB DERUXTECAN
     Indication: Breast cancer metastatic
     Dosage: 410 MG, ONCE EVERY 3 WK
     Route: 042
     Dates: start: 20200721, end: 20210622
  2. XGEVA [Concomitant]
     Active Substance: DENOSUMAB
     Indication: Metastases to bone
     Dosage: 30 MG, ONCE EVERY 1 WK
     Route: 042
     Dates: start: 2018
  3. CALCIT [CALCIUM CITRATE;COLECALCIFEROL] [Concomitant]
     Indication: Metastases to bone
     Dosage: 2 DF
     Route: 048
     Dates: start: 2018
  4. CANDESARTAN [Concomitant]
     Active Substance: CANDESARTAN
     Indication: Hypertension
     Dosage: 16 MG
     Route: 048
     Dates: start: 2020
  5. SINGULAIR [Concomitant]
     Active Substance: MONTELUKAST SODIUM
     Indication: Asthma prophylaxis
     Dosage: 1 DF
     Route: 048
     Dates: start: 2020

REACTIONS (2)
  - Hypokinesia [Recovered/Resolved]
  - Ejection fraction decreased [Recovered/Resolved]

NARRATIVE: CASE EVENT DATE: 20210630
